FAERS Safety Report 14666946 (Version 2)
Quarter: 2018Q2

REPORT INFORMATION
  Report Type: Spontaneous
  Country: US (occurrence: US)
  Receive Date: 20180322
  Receipt Date: 20180419
  Transmission Date: 20180711
  Serious: No
  Sender: FDA-Public Use
  Company Number: US-CELGENEUS-USA-20180306718

PATIENT
  Sex: Male

DRUGS (1)
  1. OTEZLA [Suspect]
     Active Substance: APREMILAST
     Indication: DRUG THERAPY
     Dosage: 60 MILLIGRAM
     Route: 048
     Dates: start: 20161017

REACTIONS (1)
  - Drug ineffective [Unknown]
